FAERS Safety Report 9736243 (Version 1)
Quarter: 2013Q4

REPORT INFORMATION
  Report Type: Spontaneous
  Country: CA (occurrence: CA)
  Receive Date: 20131206
  Receipt Date: 20131206
  Transmission Date: 20140711
  Serious: Yes (Other)
  Sender: FDA-Public Use
  Company Number: PHHY2013CA138102

PATIENT
  Age: 57 Year
  Sex: Female

DRUGS (7)
  1. METFORMIN [Suspect]
     Indication: GLUCOSE TOLERANCE IMPAIRED
     Dosage: 500 MG, BID
  2. METFORMIN [Suspect]
     Indication: METABOLIC SYNDROME
     Dosage: 500 MG, QD
  3. METFORMIN [Suspect]
     Dosage: 500 MG, BID
  4. ROSUVASTATIN [Suspect]
     Indication: HYPERTENSION
     Dosage: 10 MG, DAILY
  5. VALSARTAN [Suspect]
     Indication: HYPERTENSION
     Dosage: 320 MG, DAILY
  6. ACETYLSALICYLIC ACID [Concomitant]
     Dosage: 80 MG, QD
  7. HYDROCHLOROTHIAZIDE [Concomitant]
     Indication: HYPERTENSION
     Dosage: 25 MG, QD

REACTIONS (8)
  - Blood pressure increased [Unknown]
  - Endometrial hyperplasia [Unknown]
  - Vaginal haemorrhage [Unknown]
  - Postmenopausal haemorrhage [Unknown]
  - Glycosylated haemoglobin increased [Unknown]
  - Endometrial hypertrophy [Unknown]
  - Uterine leiomyoma [Unknown]
  - Hyperinsulinaemia [Unknown]
